FAERS Safety Report 16675388 (Version 2)
Quarter: 2019Q3

REPORT INFORMATION
  Report Type: Spontaneous
  Country: US (occurrence: US)
  Receive Date: 20190806
  Receipt Date: 20190826
  Transmission Date: 20191004
  Serious: Yes (Hospitalization)
  Sender: FDA-Public Use
  Company Number: US-VERTEX PHARMACEUTICALS-2019-007181

PATIENT
  Age: 41 Year
  Sex: Male

DRUGS (27)
  1. INSULIN [Concomitant]
     Active Substance: INSULIN NOS
  2. VALGANCICLOVIR. [Concomitant]
     Active Substance: VALGANCICLOVIR
  3. LEVOFLOXACIN. [Concomitant]
     Active Substance: LEVOFLOXACIN
  4. CONTOUR [ESOMEPRAZOLE MAGNESIUM] [Concomitant]
  5. BUPROPION HCL [Concomitant]
     Active Substance: BUPROPION HYDROCHLORIDE
  6. AMOXYCLAV [AMOXICILLIN SODIUM;CLAVULANATE POTASSIUM] [Concomitant]
  7. MAGNESIUM OXIDE. [Concomitant]
     Active Substance: MAGNESIUM OXIDE
  8. NOXAFIL [Concomitant]
     Active Substance: POSACONAZOLE
  9. OYSCO 500+D [Concomitant]
  10. SYMDEKO [Suspect]
     Active Substance: IVACAFTOR\TEZACAFTOR
     Indication: CYSTIC FIBROSIS
     Dosage: 100MG TEZACAFTOR/150MG IVACAFTOR; 150MG IVACAFTOR, TWICE WEEKLY
     Route: 048
     Dates: start: 20180504
  11. OMEPRAZOLE. [Concomitant]
     Active Substance: OMEPRAZOLE
  12. SPS [Concomitant]
     Active Substance: SODIUM POLYSTYRENE SULFONATE
  13. AZITHROMYCIN ANHYDROUS. [Concomitant]
     Active Substance: AZITHROMYCIN ANHYDROUS
  14. HYDROCORT [HYDROCORTISONE ACETATE] [Concomitant]
  15. NOVOLIN N [Concomitant]
     Active Substance: INSULIN HUMAN
  16. FLUDROCORTISON [Concomitant]
     Active Substance: FLUDROCORTISONE
  17. METOPROLOL TARTRATE. [Concomitant]
     Active Substance: METOPROLOL TARTRATE
  18. PREDNISONE. [Concomitant]
     Active Substance: PREDNISONE
  19. TACROLIMUS. [Concomitant]
     Active Substance: TACROLIMUS
  20. MYCOPHENOLATE [Concomitant]
     Active Substance: MYCOPHENOLIC ACID
  21. ATOVAQUONE. [Concomitant]
     Active Substance: ATOVAQUONE
  22. JANUVIA [Concomitant]
     Active Substance: SITAGLIPTIN PHOSPHATE
  23. SMZ-TMP [Concomitant]
     Active Substance: SULFAMETHOXAZOLE\TRIMETHOPRIM
  24. GAVILYTE G [Concomitant]
     Active Substance: POLYETHYLENE GLYCOL 3350\POTASSIUM CHLORIDE\SODIUM BICARBONATE\SODIUM CHLORIDE\SODIUM SULFATE ANHYDROUS
  25. LINZESS [Concomitant]
     Active Substance: LINACLOTIDE
  26. DOXYCYCLINE HYCLATE [DOXYCYCLINE HYDROCHLORIDE] [Concomitant]
  27. NOVOLOG [Concomitant]
     Active Substance: INSULIN ASPART

REACTIONS (1)
  - Fluid retention [Not Recovered/Not Resolved]

NARRATIVE: CASE EVENT DATE: 20190726
